FAERS Safety Report 8992109 (Version 4)
Quarter: 2014Q1

REPORT INFORMATION
  Report Type: Spontaneous
  Country: JP (occurrence: JP)
  Receive Date: 20121231
  Receipt Date: 20140204
  Transmission Date: 20141002
  Serious: Yes (Life-Threatening, Hospitalization)
  Sender: FDA-Public Use
  Company Number: JP-009507513-1212JPN009564

PATIENT
  Age: 78 Year
  Sex: Female
  Weight: 47 kg

DRUGS (13)
  1. JANUVIA TABLETS 50MG [Suspect]
     Indication: DIABETES MELLITUS
     Dosage: 50 MG, QD
     Route: 048
     Dates: start: 20121031, end: 20121219
  2. JANUVIA TABLETS 50MG [Suspect]
     Dosage: DAILY DOSAGE UNKNOWN
     Route: 048
  3. PREDONINE [Suspect]
     Indication: TAKAYASU^S ARTERITIS
     Dosage: 10 MG, BID
     Route: 048
     Dates: start: 200905
  4. GASTER D [Concomitant]
     Dosage: 40 MG, BID
     Route: 048
  5. WARFARIN SODIUM [Concomitant]
     Indication: ATRIAL FIBRILLATION
     Dosage: 1 MG, QD
     Route: 048
  6. PREMINENT TABLETS [Concomitant]
     Indication: HYPERTENSION
     Dosage: 1 DF, QD
     Route: 048
     Dates: start: 200905
  7. LIPITOR [Concomitant]
     Indication: DYSLIPIDAEMIA
     Dosage: 5 MG, QD
     Route: 048
     Dates: start: 200905
  8. MAINHEART [Concomitant]
     Dosage: 0.5 MG, UNKNOWN
     Route: 048
     Dates: start: 200905
  9. ADALAT CR [Concomitant]
     Indication: HYPERTENSION
     Dosage: 40 MG, BID
     Route: 048
  10. MAINTATE [Concomitant]
     Indication: HYPERTENSION
     Dosage: 2.5 MG, QD
     Route: 048
     Dates: start: 200905
  11. CRESTOR [Concomitant]
     Indication: DYSLIPIDAEMIA
     Dosage: 2.5 MG, QD
     Route: 048
  12. BAYASPIRIN [Concomitant]
     Indication: ATRIAL FIBRILLATION
     Dosage: 100 MG, QD
     Route: 048
  13. ENDOXAN [Concomitant]
     Indication: TAKAYASU^S ARTERITIS
     Dosage: 50 MG, QD
     Route: 048
     Dates: start: 201207, end: 20121031

REACTIONS (1)
  - Disseminated tuberculosis [Recovered/Resolved]
